FAERS Safety Report 8371687-6 (Version None)
Quarter: 2012Q2

REPORT INFORMATION
  Report Type: 
  Country: None (occurrence: None)
  Receive Date: 20120518
  Receipt Date: 20120511
  Transmission Date: 20120825
  Serious: No
  Sender: FDA-Public Use
  Company Number: US-PFIZER INC-2012117626

PATIENT
  Sex: Female
  Weight: 90.7 kg

DRUGS (2)
  1. IBUPROFEN [Suspect]
     Indication: BACK DISORDER
     Dosage: UNK
     Dates: start: 20030101, end: 20030101
  2. PREVACID [Concomitant]
     Dosage: UNK

REACTIONS (1)
  - DRUG INEFFECTIVE [None]
